FAERS Safety Report 16976384 (Version 3)
Quarter: 2019Q4

REPORT INFORMATION
  Report Type: Spontaneous
  Country: CH (occurrence: CH)
  Receive Date: 20191030
  Receipt Date: 20191118
  Transmission Date: 20200122
  Serious: Yes (Other)
  Sender: FDA-Public Use
  Company Number: CH-ABBVIE-19K-151-2984061-00

PATIENT
  Age: 52 Year
  Sex: Female

DRUGS (2)
  1. HUMIRA [Suspect]
     Active Substance: ADALIMUMAB
     Indication: SPONDYLOARTHROPATHY
     Route: 058
     Dates: start: 20180501, end: 20190820
  2. HUMIRA [Suspect]
     Active Substance: ADALIMUMAB
     Indication: COLITIS ULCERATIVE

REACTIONS (3)
  - Skin ulcer [Unknown]
  - Vasculitis necrotising [Recovering/Resolving]
  - Antinuclear antibody increased [Unknown]

NARRATIVE: CASE EVENT DATE: 20190802
